FAERS Safety Report 9137432 (Version 1)
Quarter: 2013Q1

REPORT INFORMATION
  Report Type: Spontaneous
  Country: US (occurrence: US)
  Receive Date: 20130219
  Receipt Date: 20130219
  Transmission Date: 20140127
  Serious: No
  Sender: FDA-Public Use
  Company Number: US-BRISTOL-MYERS SQUIBB COMPANY-16824336

PATIENT
  Age: 49 Year
  Sex: Female

DRUGS (14)
  1. ABATACEPT SUBQ INJECTION 125MG/ML [Suspect]
     Indication: RHEUMATOID ARTHRITIS
     Route: 058
     Dates: start: 201112
  2. METHOTREXATE [Suspect]
  3. LYRICA [Concomitant]
  4. FOLIC ACID [Concomitant]
  5. VITAMIN D [Concomitant]
  6. METHADONE [Concomitant]
  7. NAPROXEN [Concomitant]
  8. DOCUSATE [Concomitant]
  9. SENNA [Concomitant]
  10. DESIPRAMINE [Concomitant]
  11. PLAQUENIL [Concomitant]
  12. PREMPRO [Concomitant]
  13. VICODIN [Concomitant]
  14. OMEPRAZOLE [Concomitant]

REACTIONS (1)
  - Pharyngitis [Unknown]
